FAERS Safety Report 20629065 (Version 1)
Quarter: 2022Q1

REPORT INFORMATION
  Report Type: Report from Study
  Country: BR (occurrence: BR)
  Receive Date: 20220323
  Receipt Date: 20220323
  Transmission Date: 20220423
  Serious: Yes (Other)
  Sender: FDA-Public Use
  Company Number: BR-JNJFOC-20220338155

PATIENT
  Age: 74 Year
  Sex: Female

DRUGS (2)
  1. SIMPONI [Suspect]
     Active Substance: GOLIMUMAB
     Indication: Rheumatoid arthritis
     Dosage: 0.5 ML
     Route: 058
     Dates: start: 20200302
  2. SIMPONI [Suspect]
     Active Substance: GOLIMUMAB
     Dosage: 0.5 ML
     Route: 058
     Dates: start: 2021

REACTIONS (9)
  - Thrombosis [Unknown]
  - Haemorrhage [Unknown]
  - Spinal fracture [Unknown]
  - Rheumatoid arthritis [Unknown]
  - Fall [Unknown]
  - Osteoporosis [Unknown]
  - Osteoarthritis [Unknown]
  - Vision blurred [Not Recovered/Not Resolved]
  - Contusion [Unknown]

NARRATIVE: CASE EVENT DATE: 20220301
